FAERS Safety Report 11269260 (Version 3)
Quarter: 2015Q3

REPORT INFORMATION
  Report Type: Report from Study
  Country: US (occurrence: US)
  Receive Date: 20150714
  Receipt Date: 20150915
  Transmission Date: 20151125
  Serious: No
  Sender: FDA-Public Use
  Company Number: PHEH2015US005649

PATIENT
  Age: 50 Year
  Sex: Female

DRUGS (3)
  1. DIOVAN [Suspect]
     Active Substance: VALSARTAN
     Indication: PRODUCT USED FOR UNKNOWN INDICATION
     Dosage: 160 MG,
     Route: 048
  2. LOSARTAN. [Suspect]
     Active Substance: LOSARTAN
     Indication: HYPERTENSION
     Dosage: 50 MG, QD
     Route: 065
     Dates: start: 20150316, end: 20150320
  3. XANAX [Concomitant]
     Active Substance: ALPRAZOLAM
     Indication: ANXIETY
     Dosage: 0.5 MG, QD
     Route: 048
     Dates: start: 20150120

REACTIONS (11)
  - Blood pressure decreased [Unknown]
  - Hypotension [Unknown]
  - Asthenia [Recovered/Resolved]
  - Stress [Unknown]
  - Abdominal discomfort [Recovered/Resolved]
  - Chest discomfort [Recovered/Resolved]
  - Dyspepsia [Unknown]
  - Eructation [Recovered/Resolved]
  - Weight decreased [Unknown]
  - Weight decreased [Recovered/Resolved]
  - Wrong technique in product usage process [Unknown]

NARRATIVE: CASE EVENT DATE: 20150320
